FAERS Safety Report 9504612 (Version 2)
Quarter: 2013Q3

REPORT INFORMATION
  Report Type: Spontaneous
  Country: US (occurrence: US)
  Receive Date: 20130906
  Receipt Date: 20130912
  Transmission Date: 20140515
  Serious: Yes (Other)
  Sender: FDA-Public Use
  Company Number: US-ABBOTT-13P-163-1143469-00

PATIENT
  Age: 15 Year
  Sex: Female

DRUGS (2)
  1. VALPROATE SALT NOT SPECIFIED [Suspect]
     Indication: GRAND MAL CONVULSION
     Dosage: AT BEDTIME
     Route: 065
  2. LAMOTRIGINE [Suspect]
     Indication: GRAND MAL CONVULSION
     Route: 065

REACTIONS (5)
  - Convulsion [Unknown]
  - Drug interaction [Unknown]
  - Sluggishness [Unknown]
  - Weight increased [Unknown]
  - Tremor [Unknown]
